FAERS Safety Report 8940760 (Version 2)
Quarter: 2014Q2

REPORT INFORMATION
  Report Type: Spontaneous
  Country: NL (occurrence: NL)
  Receive Date: 20121203
  Receipt Date: 20140627
  Transmission Date: 20141212
  Serious: Yes (Other)
  Sender: FDA-Public Use
  Company Number: NL-ROCHE-1160595

PATIENT
  Sex: Female

DRUGS (7)
  1. RIVOTRIL [Suspect]
     Indication: DEPRESSION
     Route: 048
  2. RIVOTRIL [Suspect]
     Route: 048
  3. ANAFRANIL [Suspect]
     Indication: DEPRESSION
     Route: 065
  4. TRANDATE [Suspect]
     Indication: HYPERTENSION
     Route: 065
  5. MECLIZINE HYDROCHLORIDE/PYRIDOXINE HYDROCHLORIDE [Suspect]
     Indication: NAUSEA
     Route: 065
  6. DIORALYTE SACHET [Suspect]
     Indication: NAUSEA
     Route: 065
  7. IMODIUM [Suspect]
     Indication: PRODUCT USED FOR UNKNOWN INDICATION
     Route: 065

REACTIONS (3)
  - Exposure during pregnancy [Unknown]
  - Pre-eclampsia [Unknown]
  - Placental infarction [None]
